FAERS Safety Report 8844318 (Version 1)
Quarter: 2012Q4

REPORT INFORMATION
  Report Type: 
  Country: PR (occurrence: PR)
  Receive Date: 20121017
  Receipt Date: 20121017
  Transmission Date: 20130627
  Serious: Yes (Other)
  Sender: FDA-Public Use
  Company Number: PR-BAYER-2012-107357

PATIENT

DRUGS (1)
  1. AVELOX [Suspect]
     Dosage: 400 mg, UNK

REACTIONS (1)
  - Tendon rupture [None]
